FAERS Safety Report 23917313 (Version 1)
Quarter: 2024Q2

REPORT INFORMATION
  Report Type: Report from Study
  Country: US (occurrence: US)
  Receive Date: 20240529
  Receipt Date: 20240529
  Transmission Date: 20240715
  Serious: No
  Sender: FDA-Public Use
  Company Number: US-AstraZeneca-CH-00632747A

PATIENT
  Sex: Male

DRUGS (1)
  1. STRENSIQ [Suspect]
     Active Substance: ASFOTASE ALFA
     Indication: Hypophosphatasia
     Dosage: UNK
     Route: 058

REACTIONS (11)
  - Vitamin D decreased [Unknown]
  - Bone pain [Unknown]
  - Memory impairment [Unknown]
  - Migraine [Unknown]
  - Tooth fracture [Unknown]
  - Palpitations [Unknown]
  - Hypertension [Unknown]
  - Anxiety [Unknown]
  - Polyuria [Unknown]
  - Pain [Not Recovered/Not Resolved]
  - Depression [Unknown]
